FAERS Safety Report 5753267-1 (Version None)
Quarter: 2008Q2

REPORT INFORMATION
  Report Type: 
  Country: None (occurrence: None)
  Receive Date: 20080530
  Receipt Date: 20071010
  Transmission Date: 20081010
  Serious: No
  Sender: FDA-Public Use
  Company Number: A0686922A

PATIENT
  Age: 66 Year
  Sex: Female

DRUGS (3)
  1. VENTOLIN [Suspect]
     Indication: CHRONIC OBSTRUCTIVE PULMONARY DISEASE
     Dosage: 1PUFF PER DAY
     Route: 055
     Dates: start: 20071007, end: 20071009
  2. PRO-AIR [Concomitant]
     Route: 055
  3. ALBUTEROL [Concomitant]
     Route: 065

REACTIONS (8)
  - DRUG ADMINISTRATION ERROR [None]
  - NAUSEA [None]
  - NERVOUSNESS [None]
  - RESPIRATORY DISORDER [None]
  - RETCHING [None]
  - SENSORY DISTURBANCE [None]
  - STOMACH DISCOMFORT [None]
  - TREMOR [None]
